FAERS Safety Report 8802213 (Version 1)
Quarter: 2012Q4

REPORT INFORMATION
  Report Type: 
  Country: BR (occurrence: BR)
  Receive Date: 20120921
  Receipt Date: 20120921
  Transmission Date: 20130627
  Serious: Yes (Death)
  Sender: FDA-Public Use
  Company Number: BR-SHIRE-ALL1-2012-04454

PATIENT
  Sex: Male

DRUGS (1)
  1. ELAPRASE [Suspect]
     Indication: MUCOPOLYSACCHARIDOSIS II
     Dosage: UNK, Unknown
     Route: 041
     Dates: start: 200803

REACTIONS (3)
  - Asthmatic crisis [Fatal]
  - Respiratory arrest [Fatal]
  - Cardiac arrest [Fatal]
